FAERS Safety Report 4444188-5 (Version None)
Quarter: 2004Q3

REPORT INFORMATION
  Report Type: 
  Country: None (occurrence: None)
  Receive Date: 20040902
  Receipt Date: 20040812
  Transmission Date: 20050211
  Serious: Yes (Other)
  Sender: FDA-Public Use
  Company Number: USA040875313

PATIENT
  Age: 24 Year
  Sex: Female

DRUGS (4)
  1. HUMULIN R [Suspect]
     Dates: start: 19820101
  2. HUMULIN N [Suspect]
     Dosage: 43 U DAY
     Dates: start: 19820101
  3. INSULIN [Suspect]
     Dates: start: 19640101, end: 19820101
  4. INSULIN [Suspect]
     Dates: start: 19640101, end: 19820101

REACTIONS (12)
  - ASTHMA [None]
  - CARDIAC PROCEDURE COMPLICATION [None]
  - CATARACT [None]
  - CORONARY ARTERY OCCLUSION [None]
  - DIABETIC NEUROPATHY [None]
  - DIABETIC RETINOPATHY [None]
  - DYSPEPSIA [None]
  - HYPERTENSION [None]
  - IMPAIRED DRIVING ABILITY [None]
  - INTERMITTENT CLAUDICATION [None]
  - MEDICATION ERROR [None]
  - PHARMACEUTICAL PRODUCT COMPLAINT [None]
